FAERS Safety Report 11475109 (Version 1)
Quarter: 2015Q3

REPORT INFORMATION
  Report Type: Spontaneous
  Country: JP (occurrence: JP)
  Receive Date: 20150908
  Receipt Date: 20150908
  Transmission Date: 20151125
  Serious: Yes (Death, Hospitalization, Other)
  Sender: FDA-Public Use
  Company Number: JP-NAPPMUNDI-GBR-2015-0030727

PATIENT
  Age: 74 Year
  Sex: Female

DRUGS (13)
  1. OXYCODONE HCL PR TABLET [Suspect]
     Active Substance: OXYCODONE HYDROCHLORIDE
     Indication: CANCER PAIN
     Dosage: 20 MG, BID
     Route: 048
     Dates: start: 20150609, end: 20150717
  2. MYSLEE [Concomitant]
     Active Substance: ZOLPIDEM TARTRATE
  3. LOXONIN [Concomitant]
     Active Substance: LOXOPROFEN SODIUM
  4. PROMAC                             /00024401/ [Concomitant]
     Active Substance: NITROFURANTOIN
  5. MAGNESIUM OXIDE. [Concomitant]
     Active Substance: MAGNESIUM OXIDE
  6. JZOLOFT [Concomitant]
     Active Substance: SERTRALINE HYDROCHLORIDE
  7. VITAMINE C [Concomitant]
     Indication: FLUID REPLACEMENT
     Dosage: 500 MG, UNK
     Route: 041
     Dates: start: 20150623, end: 20150716
  8. THIAMINE DISULFIDE [Concomitant]
     Active Substance: THIAMINE DISULFIDE
     Indication: FLUID REPLACEMENT
     Dosage: 50 MG, UNK
     Route: 041
     Dates: start: 20150623, end: 20150716
  9. NOVAMIN                            /00013301/ [Suspect]
     Active Substance: PROCHLORPERAZINE MALEATE
     Indication: NAUSEA
     Dosage: 5 MG, TID
     Route: 048
     Dates: start: 20150623, end: 20150717
  10. RINDERON                           /00008501/ [Concomitant]
     Active Substance: BETAMETHASONE
  11. LACTEC                             /00490001/ [Concomitant]
     Indication: FLUID REPLACEMENT
     Dosage: 250 ML, UNK
     Route: 041
     Dates: start: 20150623, end: 20150716
  12. LYRICA [Suspect]
     Active Substance: PREGABALIN
     Indication: CANCER PAIN
     Dosage: 75 MG, DAILY
     Route: 048
     Dates: start: 20150715, end: 20150716
  13. NEXIUM [Concomitant]
     Active Substance: ESOMEPRAZOLE MAGNESIUM

REACTIONS (4)
  - Urinary retention [Recovered/Resolved]
  - General physical health deterioration [Fatal]
  - Disease progression [Fatal]
  - Blood pressure decreased [Fatal]

NARRATIVE: CASE EVENT DATE: 20150716
